FAERS Safety Report 21525501 (Version 2)
Quarter: 2022Q4

REPORT INFORMATION
  Report Type: Report from Study
  Country: JP (occurrence: JP)
  Receive Date: 20221030
  Receipt Date: 20221103
  Transmission Date: 20230113
  Serious: Yes (Hospitalization)
  Sender: FDA-Public Use
  Company Number: JP-SA-2022SA433627

PATIENT
  Age: 72 Year
  Sex: Female
  Weight: 54 kg

DRUGS (12)
  1. AFLIBERCEPT [Suspect]
     Active Substance: AFLIBERCEPT
     Indication: Colon cancer
     Dosage: AS SPECIFIED IN THE PROTOCOL
     Route: 041
     Dates: start: 20220816, end: 20221018
  2. IRINOTECAN HYDROCHLORIDE [Concomitant]
     Active Substance: IRINOTECAN HYDROCHLORIDE
     Indication: Colon cancer
     Dosage: AS SPECIFIED IN THE PROTOCOL
     Route: 065
     Dates: start: 20220816, end: 20221018
  3. IRINOTECAN HYDROCHLORIDE [Concomitant]
     Active Substance: IRINOTECAN HYDROCHLORIDE
     Dosage: AS SPECIFIED IN THE PROTOCOL
     Route: 065
     Dates: start: 20221024
  4. FLUOROURACIL [Concomitant]
     Active Substance: FLUOROURACIL
     Indication: Colon cancer
     Dosage: AS SPECIFIED IN THE PROTOCOL
     Route: 065
     Dates: start: 20220816, end: 20221018
  5. FLUOROURACIL [Concomitant]
     Active Substance: FLUOROURACIL
     Dosage: AS SPECIFIED IN THE PROTOCOL
     Route: 065
     Dates: start: 20221024
  6. LEVOLEUCOVORIN CALCIUM [Concomitant]
     Active Substance: LEVOLEUCOVORIN CALCIUM
     Indication: Colon cancer
     Dosage: AS SPECIFIED IN THE PROTOCOL
     Route: 065
     Dates: start: 20220816, end: 20221018
  7. LEVOLEUCOVORIN CALCIUM [Concomitant]
     Active Substance: LEVOLEUCOVORIN CALCIUM
     Dosage: AS SPECIFIED IN THE PROTOCOL
     Route: 065
     Dates: start: 20221024
  8. VONOPRAZAN FUMARATE [Concomitant]
     Active Substance: VONOPRAZAN FUMARATE
     Indication: Prophylaxis
     Dosage: 1 TABLET/DOSE, QD
     Route: 048
     Dates: start: 20210304
  9. METHYLCOBALAMIN [Concomitant]
     Active Substance: METHYLCOBALAMIN
     Indication: Product used for unknown indication
     Dosage: 1 TABLET/DOSE, TID
     Route: 048
     Dates: start: 20211112
  10. AZILSARTAN KAMEDOXOMIL [Concomitant]
     Active Substance: AZILSARTAN KAMEDOXOMIL
     Indication: Hypertension
     Dosage: 1 TABLET/DOSE, QD
     Route: 048
     Dates: start: 20220816
  11. AMLODIPINE BESYLATE [Concomitant]
     Active Substance: AMLODIPINE BESYLATE
     Indication: Hypertension
     Dosage: 1 TABLET/DOSE, QD
     Route: 048
     Dates: start: 20220906
  12. GENTAMICIN SULFATE [Concomitant]
     Active Substance: GENTAMICIN SULFATE
     Indication: Product used for unknown indication
     Dosage: APPLICATION, SEVERAL TIMES A DAY
     Route: 061
     Dates: start: 20220329

REACTIONS (3)
  - Catheter site ulcer [Recovering/Resolving]
  - Catheter site pain [Recovering/Resolving]
  - Impaired healing [Unknown]

NARRATIVE: CASE EVENT DATE: 20221006
